FAERS Safety Report 4350716-0 (Version None)
Quarter: 2004Q2

REPORT INFORMATION
  Report Type: 
  Country: None (occurrence: None)
  Receive Date: 20040430
  Receipt Date: 20040413
  Transmission Date: 20050107
  Serious: Yes (Other)
  Sender: FDA-Public Use
  Company Number: JP-MERCK-0404USA01510

PATIENT
  Age: 54 Year
  Sex: Male
  Weight: 68 kg

DRUGS (5)
  1. CARBOCYSTEINE [Suspect]
     Indication: COUGH
     Route: 048
     Dates: start: 20040330, end: 20040405
  2. HUSCODE [Concomitant]
     Indication: COUGH
     Route: 065
     Dates: start: 20040330, end: 20040405
  3. SINGULAIR [Suspect]
     Indication: ASTHMA
     Route: 048
     Dates: start: 20040330, end: 20040405
  4. SERRAPEPTASE [Concomitant]
     Indication: COUGH
     Route: 065
     Dates: start: 20040330, end: 20040405
  5. TRANEXAMIC ACID [Concomitant]
     Indication: COUGH
     Route: 065
     Dates: start: 20040330, end: 20040405

REACTIONS (1)
  - HEPATITIS ACUTE [None]
